FAERS Safety Report 7478202-X (Version None)
Quarter: 2011Q2

REPORT INFORMATION
  Report Type: 
  Country: None (occurrence: None)
  Receive Date: 20110513
  Receipt Date: 20110428
  Transmission Date: 20111010
  Serious: Yes (Hospitalization)
  Sender: FDA-Public Use
  Company Number: PHHY2011CA23904

PATIENT
  Sex: Male

DRUGS (12)
  1. SANDOSTATIN LAR [Suspect]
     Indication: ACROMEGALY
     Dosage: 40 MG ONCE A MONTH
     Route: 030
     Dates: start: 20090824
  2. CARVEDILOL [Concomitant]
     Dosage: 625 MG, BID
  3. ALFACET [Concomitant]
     Dosage: 125 MG, UNK
  4. VENTOLIN [Concomitant]
  5. COUMADIN [Concomitant]
  6. LASIX [Concomitant]
     Dosage: 20 MG, UNK
  7. ASPIRIN [Concomitant]
  8. LIPITOR [Concomitant]
     Dosage: 40 MG, UNK
  9. ALDACTONE [Concomitant]
     Dosage: 25 MG, UNK
  10. ADVAIR DISKUS 100/50 [Concomitant]
  11. FLOMAX [Concomitant]
  12. SANDOSTATIN LAR [Suspect]
     Dosage: 30 MG, QMO
     Route: 030

REACTIONS (1)
  - DYSPNOEA [None]
